FAERS Safety Report 6894957-7 (Version None)
Quarter: 2010Q3

REPORT INFORMATION
  Report Type: 
  Country: None (occurrence: None)
  Receive Date: 20100802
  Receipt Date: 20100629
  Transmission Date: 20110219
  Serious: Yes (Other)
  Sender: FDA-Public Use
  Company Number: JP-ROCHE-717463

PATIENT
  Sex: Male
  Weight: 3.1 kg

DRUGS (1)
  1. OSELTAMIVIR [Suspect]
     Indication: ANTIVIRAL PROPHYLAXIS
     Dosage: FORM: ORAL FORMATION ( NOT OTHERWISE SPECIFIED)
     Route: 064
     Dates: start: 20091118, end: 20091127

REACTIONS (3)
  - DRUG EXPOSURE DURING PREGNANCY [None]
  - NORMAL NEWBORN [None]
  - PYELOCALIECTASIS [None]
